FAERS Safety Report 7597238-1 (Version None)
Quarter: 2011Q3

REPORT INFORMATION
  Report Type: 
  Country: None (occurrence: None)
  Receive Date: 20110708
  Receipt Date: 20101124
  Transmission Date: 20111222
  Serious: No
  Sender: FDA-Public Use
  Company Number: US-GLAXOSMITHKLINE-A0896400B

PATIENT
  Sex: Male

DRUGS (4)
  1. FLOVENT [Suspect]
     Indication: ASTHMA
     Dosage: 2PUFF TWICE PER DAY
     Route: 064
     Dates: start: 20090101, end: 20100501
  2. ORAPRED [Concomitant]
     Indication: ASTHMA PROPHYLAXIS
     Dosage: 3TSP PER DAY
     Route: 064
  3. ANTIBIOTICS [Concomitant]
     Route: 064
  4. ALBUTEROL SULFATE AUTOHALER [Concomitant]
     Route: 064

REACTIONS (3)
  - MATERNAL EXPOSURE DURING PREGNANCY [None]
  - EXPOSURE DURING BREAST FEEDING [None]
  - SMALL FOR DATES BABY [None]
